FAERS Safety Report 6491841-8 (Version None)
Quarter: 2009Q4

REPORT INFORMATION
  Report Type: 
  Country: None (occurrence: None)
  Receive Date: 20091125
  Receipt Date: 20090518
  Transmission Date: 20100525
  Serious: Yes (Other)
  Sender: FDA-Public Use
  Company Number: 2009BH008724

PATIENT
  Age: 59 Year
  Sex: Female
  Weight: 105.2345 kg

DRUGS (19)
  1. DIANEAL [Suspect]
     Indication: PERITONEAL DIALYSIS
     Dosage: 18 L;EVERY DAY;IP
     Dates: start: 20080729
  2. AMBIEN [Concomitant]
  3. AMLODIPINE [Concomitant]
  4. ASPIRIN [Concomitant]
  5. COLACE [Concomitant]
  6. FOSRENOL [Concomitant]
  7. HECTOROL [Concomitant]
  8. INSULIN [Concomitant]
  9. IMDUR [Concomitant]
  10. LIPITOR [Concomitant]
  11. LISINOPRIL [Concomitant]
  12. MEGACE [Concomitant]
  13. REGLAN [Concomitant]
  14. NEPHRO-VITE RX [Concomitant]
  15. NORVASC [Concomitant]
  16. RENAGEL [Concomitant]
  17. SENSIPAR [Concomitant]
  18. VICODIN [Concomitant]
  19. EPOGEN [Concomitant]

REACTIONS (3)
  - DIARRHOEA [None]
  - PERITONEAL DIALYSIS COMPLICATION [None]
  - PERITONITIS BACTERIAL [None]
